FAERS Safety Report 24316067 (Version 1)
Quarter: 2024Q3

REPORT INFORMATION
  Report Type: Spontaneous
  Country: JP (occurrence: JP)
  Receive Date: 20240913
  Receipt Date: 20240913
  Transmission Date: 20241016
  Serious: Yes (Hospitalization, Other)
  Sender: Carnegie Pharmaceuticals
  Company Number: JP-CARNEGIE-000034

PATIENT
  Age: 29 Year
  Sex: Female
  Weight: 48 kg

DRUGS (10)
  1. CYCLOPHOSPHAMIDE [Concomitant]
     Active Substance: CYCLOPHOSPHAMIDE
     Indication: Chemotherapy
     Route: 065
  2. CYCLOPHOSPHAMIDE [Concomitant]
     Active Substance: CYCLOPHOSPHAMIDE
     Indication: Breast cancer
     Route: 065
  3. TRASTUZUMAB [Concomitant]
     Active Substance: TRASTUZUMAB
     Indication: Chemotherapy
     Route: 065
  4. TRASTUZUMAB [Concomitant]
     Active Substance: TRASTUZUMAB
     Indication: Breast cancer
     Route: 065
  5. CABERGOLINE [Concomitant]
     Active Substance: CABERGOLINE
     Indication: Ovarian hyperstimulation syndrome
     Route: 048
  6. GANIRELIX [Concomitant]
     Active Substance: GANIRELIX
     Indication: Blood follicle stimulating hormone increased
     Route: 065
  7. LETROZOLE [Suspect]
     Active Substance: LETROZOLE
     Indication: Abdominal pain
     Dosage: ON DAY 5 OF PATIENT CYCLE
     Route: 048
  8. LETROZOLE [Suspect]
     Active Substance: LETROZOLE
     Indication: Abdominal pain
     Route: 048
  9. LETROZOLE [Suspect]
     Active Substance: LETROZOLE
     Indication: Breast cancer
     Dosage: ON DAY 5 OF PATIENT CYCLE
     Route: 048
  10. LETROZOLE [Suspect]
     Active Substance: LETROZOLE
     Indication: Breast cancer
     Route: 048

REACTIONS (2)
  - Haemoperitoneum [Unknown]
  - Ovarian haemorrhage [Unknown]
